FAERS Safety Report 14424121 (Version 1)
Quarter: 2018Q1

REPORT INFORMATION
  Report Type: Report from Study
  Country: IT (occurrence: IT)
  Receive Date: 20180123
  Receipt Date: 20180123
  Transmission Date: 20180509
  Serious: Yes (Other)
  Sender: FDA-Public Use
  Company Number: IT-NODEN PHARMA DAC-NOD-2005-000062

PATIENT
  Age: 67 Year
  Sex: Female
  Weight: 70 kg

DRUGS (1)
  1. ALISKIREN [Suspect]
     Active Substance: ALISKIREN
     Indication: ESSENTIAL HYPERTENSION
     Dosage: 150 MG, UNK
     Route: 048
     Dates: start: 20050523

REACTIONS (2)
  - Abdominal pain upper [Recovering/Resolving]
  - Dyspepsia [Recovering/Resolving]

NARRATIVE: CASE EVENT DATE: 200505
